FAERS Safety Report 6405487-0 (Version None)
Quarter: 2009Q4

REPORT INFORMATION
  Report Type: 
  Country: None (occurrence: None)
  Receive Date: 20091019
  Receipt Date: 20091009
  Transmission Date: 20100525
  Serious: Yes (Other)
  Sender: FDA-Public Use
  Company Number: BR-PFIZER INC-2009265172

PATIENT
  Age: 48 Year

DRUGS (1)
  1. CELEBRA [Suspect]
     Indication: HAEMORRHOIDS
     Dosage: 200 MG, 2X/DAY
     Route: 048
     Dates: start: 20090801, end: 20090831

REACTIONS (4)
  - AURICULAR SWELLING [None]
  - BREAST SWELLING [None]
  - PAINFUL RESPIRATION [None]
  - SKIN IRRITATION [None]
